FAERS Safety Report 13959400 (Version 2)
Quarter: 2017Q4

REPORT INFORMATION
  Report Type: Report from Study
  Country: GR (occurrence: GR)
  Receive Date: 20170912
  Receipt Date: 20171231
  Transmission Date: 20180320
  Serious: Yes (Death, Other)
  Sender: FDA-Public Use
  Company Number: GR-ROCHE-1992184

PATIENT
  Sex: Male

DRUGS (2)
  1. PIRFENIDONE. [Suspect]
     Active Substance: PIRFENIDONE
     Indication: IDIOPATHIC PULMONARY FIBROSIS
     Route: 065
     Dates: start: 20120704, end: 20130220
  2. NAC (ACETYLCYSTEINE) [Concomitant]

REACTIONS (2)
  - Septic shock [Fatal]
  - Pneumonia [Unknown]
